FAERS Safety Report 7015337-X (Version None)
Quarter: 2010Q3

REPORT INFORMATION
  Report Type: 
  Country: None (occurrence: None)
  Receive Date: 20100922
  Receipt Date: 20100909
  Transmission Date: 20110219
  Serious: Yes (Other)
  Sender: FDA-Public Use
  Company Number: 006736

PATIENT
  Age: 46 Year
  Sex: Female
  Weight: 62 kg

DRUGS (12)
  1. LACOSAMIDE [Suspect]
     Indication: COMPLEX PARTIAL SEIZURES
     Dosage: (200 MG BID ORAL), (400 MG), (100 MG ORAL), (200 MG BID ORAL)
     Route: 048
     Dates: start: 20091101, end: 20091103
  2. LACOSAMIDE [Suspect]
     Indication: PARTIAL SEIZURES
     Dosage: (200 MG BID ORAL), (400 MG), (100 MG ORAL), (200 MG BID ORAL)
     Route: 048
     Dates: start: 20091101, end: 20091103
  3. LACOSAMIDE [Suspect]
     Indication: COMPLEX PARTIAL SEIZURES
     Dosage: (200 MG BID ORAL), (400 MG), (100 MG ORAL), (200 MG BID ORAL)
     Route: 048
     Dates: start: 20091006
  4. LACOSAMIDE [Suspect]
     Indication: PARTIAL SEIZURES
     Dosage: (200 MG BID ORAL), (400 MG), (100 MG ORAL), (200 MG BID ORAL)
     Route: 048
     Dates: start: 20091006
  5. LACOSAMIDE [Suspect]
     Indication: COMPLEX PARTIAL SEIZURES
     Dosage: (200 MG BID ORAL), (400 MG), (100 MG ORAL), (200 MG BID ORAL)
     Route: 048
     Dates: start: 20091106
  6. LACOSAMIDE [Suspect]
     Indication: PARTIAL SEIZURES
     Dosage: (200 MG BID ORAL), (400 MG), (100 MG ORAL), (200 MG BID ORAL)
     Route: 048
     Dates: start: 20091106
  7. LACOSAMIDE [Suspect]
     Indication: COMPLEX PARTIAL SEIZURES
     Dosage: (200 MG BID ORAL), (400 MG), (100 MG ORAL), (200 MG BID ORAL)
     Route: 048
     Dates: start: 20091217
  8. LACOSAMIDE [Suspect]
     Indication: PARTIAL SEIZURES
     Dosage: (200 MG BID ORAL), (400 MG), (100 MG ORAL), (200 MG BID ORAL)
     Route: 048
     Dates: start: 20091217
  9. LYRICA [Concomitant]
  10. TRILEPTAL [Concomitant]
  11. INVESTIGATIONAL DRUG (INVESTIGATIONAL DRUG) [Concomitant]
  12. OXCARBAZEPINE [Concomitant]

REACTIONS (9)
  - BLOOD CALCIUM DECREASED [None]
  - BLOOD CHLORIDE DECREASED [None]
  - BLOOD SODIUM DECREASED [None]
  - COMPLEX PARTIAL SEIZURES [None]
  - CONDITION AGGRAVATED [None]
  - FALL [None]
  - JAW FRACTURE [None]
  - LEUKOPENIA [None]
  - NO THERAPEUTIC RESPONSE [None]
